FAERS Safety Report 12320840 (Version 2)
Quarter: 2017Q2

REPORT INFORMATION
  Report Type: Spontaneous
  Country: US (occurrence: US)
  Receive Date: 20160429
  Receipt Date: 20170404
  Transmission Date: 20170830
  Serious: No
  Sender: FDA-Public Use
  Company Number: US-ROCHE-1694487

PATIENT
  Sex: Female

DRUGS (2)
  1. AVASTIN [Suspect]
     Active Substance: BEVACIZUMAB
     Indication: NON-SMALL CELL LUNG CANCER
     Route: 042
  2. ALIMTA [Concomitant]
     Active Substance: PEMETREXED DISODIUM

REACTIONS (10)
  - Erythema [Unknown]
  - Feeling hot [Unknown]
  - Rhinitis [Unknown]
  - Epistaxis [Unknown]
  - Gingival bleeding [Unknown]
  - Oral pain [Unknown]
  - Hypertension [Unknown]
  - Papilloedema [Unknown]
  - Gingival pain [Unknown]
  - White blood cell count decreased [Unknown]
